FAERS Safety Report 26125246 (Version 2)
Quarter: 2025Q4

REPORT INFORMATION
  Report Type: Spontaneous
  Country: US (occurrence: US)
  Receive Date: 20251205
  Receipt Date: 20251219
  Transmission Date: 20260118
  Serious: No
  Sender: LUPIN
  Company Number: US-LUPIN PHARMACEUTICALS INC.-2025-10774

PATIENT
  Age: 45 Year

DRUGS (2)
  1. DROXIDOPA [Suspect]
     Active Substance: DROXIDOPA
     Indication: Product used for unknown indication
     Dosage: UNK
     Route: 065
  2. DUPIXENT [Suspect]
     Active Substance: DUPILUMAB
     Indication: Asthma
     Dosage: 300 MG, QOW

REACTIONS (10)
  - Vision blurred [Recovering/Resolving]
  - Visual impairment [Unknown]
  - Concussion [Unknown]
  - Injection site haemorrhage [Recovered/Resolved]
  - Dizziness [Unknown]
  - Vertigo [Unknown]
  - Dry eye [Unknown]
  - Conjunctivitis [Unknown]
  - Condition aggravated [Unknown]
  - Incorrect route of product administration [Unknown]
